FAERS Safety Report 24609188 (Version 2)
Quarter: 2024Q4

REPORT INFORMATION
  Report Type: Spontaneous
  Country: ID (occurrence: ID)
  Receive Date: 20241112
  Receipt Date: 20241114
  Transmission Date: 20250115
  Serious: Yes (Other)
  Sender: PFIZER
  Company Number: ID-MLMSERVICE-20241021-PI231903-00255-1

PATIENT
  Age: 55 Year
  Sex: Male

DRUGS (1)
  1. PACLITAXEL [Suspect]
     Active Substance: PACLITAXEL
     Indication: Coronary artery occlusion
     Dosage: DRUG-COATED BALLOONS (AFTER PREDILATATION WITH A NONCUTTING BALLOON AND A SEMI-COMPLIANT BALLOON)

REACTIONS (2)
  - Coronary artery aneurysm [Unknown]
  - Off label use [Unknown]
